FAERS Safety Report 25970322 (Version 1)
Quarter: 2025Q4

REPORT INFORMATION
  Report Type: Spontaneous
  Country: EU (occurrence: EU)
  Receive Date: 20251028
  Receipt Date: 20251028
  Transmission Date: 20260117
  Serious: Yes (Hospitalization, Other)
  Sender: AUROBINDO
  Company Number: EU-AFSSAPS-RN2025000987

PATIENT
  Age: 64 Year
  Sex: Male

DRUGS (3)
  1. IRINOTECAN [Suspect]
     Active Substance: IRINOTECAN
     Indication: Rectal cancer
     Dosage: 180 MILLIGRAM/SQ. METER, ONCE A DAY (180 MG/M2 OR 330 MG)
     Route: 042
     Dates: start: 20250909
  2. OXALIPLATIN [Suspect]
     Active Substance: OXALIPLATIN
     Indication: Rectal cancer
     Dosage: 85 MILLIGRAM/SQ. METER, ONCE A DAY (85 MG/M2 OR 155 MG)
     Route: 042
     Dates: start: 20250909
  3. FLUOROURACIL [Suspect]
     Active Substance: FLUOROURACIL
     Indication: Rectal cancer
     Dosage: 1200 MILLIGRAM/SQ. METER, ONCE A DAY (1200 MG/M2 OR 4400 MG FOR 3 DAYS)
     Route: 042
     Dates: start: 20250909

REACTIONS (1)
  - Neutropenic colitis [Recovered/Resolved]

NARRATIVE: CASE EVENT DATE: 20250914
